FAERS Safety Report 11829063 (Version 1)
Quarter: 2015Q4

REPORT INFORMATION
  Report Type: Report from Study
  Country: DE (occurrence: DE)
  Receive Date: 20151211
  Receipt Date: 20151211
  Transmission Date: 20160305
  Serious: Yes (Other)
  Sender: FDA-Public Use
  Company Number: DE-ABBVIE-15P-062-1518618-00

PATIENT
  Age: 74 Year
  Sex: Female

DRUGS (3)
  1. VIEKIRAX [Suspect]
     Active Substance: OMBITASVIR\PARITAPREVIR\RITONAVIR
     Indication: CHRONIC HEPATITIS C
     Route: 048
     Dates: start: 20150523, end: 20150811
  2. EXVIERA [Suspect]
     Active Substance: DASABUVIR
     Indication: CHRONIC HEPATITIS C
     Route: 048
     Dates: start: 20150523, end: 20150811
  3. RIBAVIRIN. [Suspect]
     Active Substance: RIBAVIRIN
     Indication: CHRONIC HEPATITIS C
     Route: 048
     Dates: start: 20150523, end: 20150811

REACTIONS (11)
  - Back pain [Unknown]
  - Cystitis [Unknown]
  - Pruritus [Unknown]
  - Fatigue [Unknown]
  - Pain in extremity [Unknown]
  - Depressed mood [Unknown]
  - Pancytopenia [Unknown]
  - Nausea [Unknown]
  - Cough [Unknown]
  - Dyspnoea exertional [Unknown]
  - Vomiting [Unknown]
